FAERS Safety Report 9377951 (Version 1)
Quarter: 2013Q3

REPORT INFORMATION
  Report Type: Other
  Country: US (occurrence: US)
  Receive Date: 20130701
  Receipt Date: 20130701
  Transmission Date: 20140515
  Serious: Yes (Hospitalization)
  Sender: FDA-Public Use
  Company Number: US-BRISTOL-MYERS SQUIBB COMPANY-19052380

PATIENT
  Age: 40 Year
  Sex: Female

DRUGS (2)
  1. EFAVIRENZ [Suspect]
     Indication: HIV INFECTION
  2. VIREAD [Suspect]
     Indication: HIV INFECTION
     Dosage: TABS

REACTIONS (5)
  - Hepatic enzyme increased [Recovered/Resolved]
  - Bradycardia [Unknown]
  - Cardiac enzymes increased [Unknown]
  - Hepatomegaly [Unknown]
  - Lactic acidosis [Recovered/Resolved]
